FAERS Safety Report 9201828 (Version 3)
Quarter: 2013Q2

REPORT INFORMATION
  Report Type: Spontaneous
  Country: US (occurrence: None)
  Receive Date: 20130328
  Receipt Date: 20130506
  Transmission Date: 20140414
  Serious: Yes (Hospitalization, Other)
  Sender: FDA-Public Use
  Company Number: US-011244

PATIENT
  Age: 71 Year
  Sex: Male
  Weight: 105 kg

DRUGS (10)
  1. FIRMAGON [Suspect]
     Indication: PROSTATE CANCER
     Dosage: 240 MG 1X SUBCUTANEOUS
     Dates: start: 20121226, end: 20121226
  2. CASODEX [Suspect]
     Indication: PROSTATE CANCER
     Route: 048
  3. HYDROCHLOROTHIAZIDE [Concomitant]
  4. ZOFRAN [Concomitant]
  5. POTASSIUM CITRATE [Concomitant]
  6. POTASSIUM CHLORIDE [Concomitant]
  7. TYLENOL [Concomitant]
  8. UROCIT-K [Concomitant]
  9. NATURAL VITAMIN D [Concomitant]
  10. BICALUTAMIDE [Concomitant]

REACTIONS (49)
  - Urinary tract infection [None]
  - Pneumonia [None]
  - Sepsis [None]
  - Hypersensitivity [None]
  - Tachycardia [None]
  - Wheezing [None]
  - Nail bed disorder [None]
  - Food allergy [None]
  - Cyanosis [None]
  - Hypotension [None]
  - Renal failure acute [None]
  - Injection site reaction [None]
  - Anaphylactic reaction [None]
  - Respiratory distress [None]
  - Atrial fibrillation [None]
  - Bradycardia [None]
  - Haemoglobin decreased [None]
  - Haematocrit decreased [None]
  - Platelet count decreased [None]
  - Urosepsis [None]
  - Hypocitraturia [None]
  - Calculus urinary [None]
  - Cystitis [None]
  - Device malfunction [None]
  - Renal disorder [None]
  - Urinary retention [None]
  - Renal cyst [None]
  - Mixed incontinence [None]
  - Urge incontinence [None]
  - Urine flow decreased [None]
  - Haematuria [None]
  - Urinary hesitation [None]
  - Back pain [None]
  - Nephrolithiasis [None]
  - Renal cancer [None]
  - Bladder neck obstruction [None]
  - Lymphoedema [None]
  - Urinary retention [None]
  - Calculus bladder [None]
  - Hydronephrosis [None]
  - Azotaemia [None]
  - Urine analysis abnormal [None]
  - Myalgia [None]
  - Arthralgia [None]
  - Muscular weakness [None]
  - Pain in extremity [None]
  - Essential hypertension [None]
  - Ureteral disorder [None]
  - Walking aid user [None]
